FAERS Safety Report 10313896 (Version 9)
Quarter: 2016Q2

REPORT INFORMATION
  Report Type: Report from Study
  Country: US (occurrence: US)
  Receive Date: 20140718
  Receipt Date: 20160427
  Transmission Date: 20160815
  Serious: Yes (Other)
  Sender: FDA-Public Use
  Company Number: US-SA-2014SA094449

PATIENT
  Age: 64 Year
  Sex: Female

DRUGS (15)
  1. FLUTICASONE PROPIONATE. [Concomitant]
     Active Substance: FLUTICASONE PROPIONATE
     Route: 055
  2. OMEPRAZOLE. [Concomitant]
     Active Substance: OMEPRAZOLE
  3. AUBAGIO [Suspect]
     Active Substance: TERIFLUNOMIDE
     Indication: MULTIPLE SCLEROSIS
     Route: 048
     Dates: end: 201601
  4. AMLODIPINE [Concomitant]
     Active Substance: AMLODIPINE BESYLATE
  5. VITAMIN D [Concomitant]
     Active Substance: CHOLECALCIFEROL
  6. VITAMIN C [Concomitant]
     Active Substance: ASCORBIC ACID
  7. AUBAGIO [Suspect]
     Active Substance: TERIFLUNOMIDE
     Indication: MULTIPLE SCLEROSIS
     Route: 048
     Dates: start: 20140616, end: 20140728
  8. TOPROL XL [Concomitant]
     Active Substance: METOPROLOL SUCCINATE
  9. CHONDROITIN SULFATE/GLUCOSAMINE HYDROCHLORIDE [Concomitant]
  10. GABAPENTIN. [Concomitant]
     Active Substance: GABAPENTIN
  11. SIMVASTATIN. [Concomitant]
     Active Substance: SIMVASTATIN
  12. AUBAGIO [Suspect]
     Active Substance: TERIFLUNOMIDE
     Indication: MULTIPLE SCLEROSIS
     Route: 048
  13. CETIRIZINE [Concomitant]
     Active Substance: CETIRIZINE HYDROCHLORIDE
  14. AUBAGIO [Suspect]
     Active Substance: TERIFLUNOMIDE
     Indication: MULTIPLE SCLEROSIS
     Route: 048
     Dates: start: 201602
  15. METOPROLOL TARTRATE. [Concomitant]
     Active Substance: METOPROLOL TARTRATE

REACTIONS (11)
  - Headache [Unknown]
  - Burning sensation [Unknown]
  - Hypoaesthesia [Unknown]
  - Progressive multiple sclerosis [Unknown]
  - Drug dose omission [Unknown]
  - Heart rate increased [Recovering/Resolving]
  - Arthritis [Unknown]
  - Blood pressure increased [Recovered/Resolved]
  - Epistaxis [Recovered/Resolved]
  - Pain in extremity [Unknown]
  - Vitamin D decreased [Not Recovered/Not Resolved]

NARRATIVE: CASE EVENT DATE: 20140708
